FAERS Safety Report 12978547 (Version 1)
Quarter: 2016Q4

REPORT INFORMATION
  Report Type: Spontaneous
  Country: US (occurrence: US)
  Receive Date: 20161128
  Receipt Date: 20161128
  Transmission Date: 20170207
  Serious: Yes (Other)
  Sender: FDA-Public Use
  Company Number: US-PFIZER INC-2016546873

PATIENT
  Age: 53 Year
  Sex: Female
  Weight: 48 kg

DRUGS (3)
  1. SYNTHROID [Concomitant]
     Active Substance: LEVOTHYROXINE SODIUM
     Indication: THYROID DISORDER
     Dosage: 75 UG, 1X/DAY
     Route: 048
  2. CLINDESSE [Concomitant]
     Active Substance: CLINDAMYCIN PHOSPHATE
     Indication: BACTERIAL VAGINOSIS
     Dosage: VAGINAL CREAM APPLIED ONCE THAT DAY
     Route: 067
     Dates: start: 20161027, end: 20161027
  3. ESTRING [Suspect]
     Active Substance: ESTRADIOL
     Indication: VULVOVAGINAL DRYNESS
     Dosage: 2 MG, UNK, 2 MG RING PLACED IN VAGINA AND LEFT IN FOR 90 DAYS
     Route: 067
     Dates: start: 201510, end: 20161122

REACTIONS (6)
  - Bacterial vaginosis [Not Recovered/Not Resolved]
  - Vaginal discharge [Unknown]
  - Vulvovaginal mycotic infection [Unknown]
  - Intentional product misuse [Unknown]
  - Dyspareunia [Unknown]
  - Vaginal odour [Recovered/Resolved]

NARRATIVE: CASE EVENT DATE: 2016
